FAERS Safety Report 6183975-2 (Version None)
Quarter: 2009Q2

REPORT INFORMATION
  Report Type: 
  Country: None (occurrence: None)
  Receive Date: 20090506
  Receipt Date: 20090506
  Transmission Date: 20091009
  Serious: No
  Sender: FDA-Public Use
  Company Number: None

PATIENT
  Sex: Male
  Weight: 184 kg

DRUGS (5)
  1. LISINOPRIL [Suspect]
     Dosage: 10MG TABLET 10 MG QD ORAL
     Route: 048
     Dates: start: 20090203, end: 20090505
  2. ASPIRIN [Concomitant]
  3. LOPID [Concomitant]
  4. METFORMIN HCL [Concomitant]
  5. MULTI-VITAMINS [Concomitant]

REACTIONS (1)
  - COUGH [None]
